FAERS Safety Report 6299652-3 (Version None)
Quarter: 2009Q3

REPORT INFORMATION
  Report Type: 
  Country: None (occurrence: None)
  Receive Date: 20090806
  Receipt Date: 20090729
  Transmission Date: 20100115
  Serious: Yes (Other)
  Sender: FDA-Public Use
  Company Number: JP-BAYER-200912230BYL

PATIENT
  Age: 43 Year
  Sex: Female
  Weight: 50 kg

DRUGS (6)
  1. BETAFERON [Suspect]
     Indication: MULTIPLE SCLEROSIS
     Dosage: TOTAL DAILY DOSE: 8 MIU
     Route: 058
     Dates: start: 20020501
  2. BETAFERON [Suspect]
     Route: 058
     Dates: start: 20090206, end: 20090528
  3. THYRADIN S [Concomitant]
     Dosage: TOTAL DAILY DOSE: 25 ?G
     Route: 048
     Dates: start: 20071025
  4. EBRANTIL [Concomitant]
     Dosage: TOTAL DAILY DOSE: 15 MG
     Route: 048
     Dates: start: 20041006
  5. LIORESAL [Concomitant]
     Dosage: TOTAL DAILY DOSE: 30 MG
     Route: 048
     Dates: start: 20020101
  6. PAXIL [Concomitant]
     Dosage: TOTAL DAILY DOSE: 20 MG
     Route: 048
     Dates: start: 20021106

REACTIONS (1)
  - PSORIASIS [None]
